FAERS Safety Report 7989302-X (Version None)
Quarter: 2011Q4

REPORT INFORMATION
  Report Type: 
  Country: None (occurrence: None)
  Receive Date: 20111219
  Receipt Date: 20111208
  Transmission Date: 20120403
  Serious: Yes (Hospitalization, Other)
  Sender: FDA-Public Use
  Company Number: US-CELGENEUS-163-21880-11121286

PATIENT
  Sex: Male

DRUGS (3)
  1. RITUXIMAB [Suspect]
     Dosage: 375 MILLIGRAM/SQ. METER
     Route: 041
     Dates: start: 20080611, end: 20081031
  2. FLUDARABINE PHOSPHATE [Suspect]
     Dosage: 25 MILLIGRAM/SQ. METER
     Route: 041
     Dates: start: 20080611, end: 20081031
  3. REVLIMID [Suspect]
     Dosage: 2.5 MILLIGRAM
     Route: 048
     Dates: start: 20080611, end: 20081029

REACTIONS (1)
  - THYROID CANCER [None]
